FAERS Safety Report 19946194 (Version 1)
Quarter: 2021Q4

REPORT INFORMATION
  Report Type: Spontaneous
  Country: US (occurrence: US)
  Receive Date: 20211012
  Receipt Date: 20211012
  Transmission Date: 20220304
  Serious: No
  Sender: FDA-Public Use
  Company Number: US-MYOVANT SCIENCES GMBH-2021MYSCI0900312

PATIENT
  Sex: Male

DRUGS (2)
  1. ORGOVYX [Suspect]
     Active Substance: RELUGOLIX
     Indication: Prostate cancer
     Dosage: 360 MILLIGRAM, ONE TIME DOSE
     Route: 048
     Dates: start: 20210813, end: 20210813
  2. ORGOVYX [Suspect]
     Active Substance: RELUGOLIX
     Dosage: 120 MILLIGRAM, QD
     Route: 048
     Dates: start: 20210814, end: 20210913

REACTIONS (13)
  - Dizziness [Unknown]
  - Hypersomnia [Unknown]
  - Lower respiratory tract congestion [Unknown]
  - Affect lability [Unknown]
  - Nightmare [Unknown]
  - Cough [Unknown]
  - Blood glucose increased [Unknown]
  - Myalgia [Unknown]
  - Diarrhoea [Unknown]
  - Depression [Unknown]
  - Hot flush [Unknown]
  - Arthralgia [Unknown]
  - Fatigue [Unknown]
